FAERS Safety Report 4988345-8 (Version None)
Quarter: 2006Q2

REPORT INFORMATION
  Report Type: 
  Country: None (occurrence: None)
  Receive Date: 20060502
  Receipt Date: 20060425
  Transmission Date: 20061013
  Serious: Yes (Death, Other)
  Sender: FDA-Public Use
  Company Number: 2006SE02397

PATIENT
  Age: 20429 Day
  Sex: Female

DRUGS (9)
  1. FASLODEX [Suspect]
     Indication: BREAST CANCER
     Route: 030
     Dates: start: 20051012, end: 20051012
  2. FASLODEX [Suspect]
     Route: 030
     Dates: start: 20051026, end: 20051026
  3. FASLODEX [Suspect]
     Route: 030
     Dates: start: 20051109, end: 20051109
  4. FASLODEX [Suspect]
     Route: 030
     Dates: start: 20051207, end: 20051207
  5. FASLODEX [Suspect]
     Route: 030
     Dates: start: 20060104, end: 20060104
  6. FASLODEX [Suspect]
     Route: 030
     Dates: start: 20060131, end: 20060131
  7. FASLODEX [Suspect]
     Route: 030
     Dates: start: 20060328, end: 20060328
  8. ARIMIDEX [Suspect]
     Indication: BREAST CANCER
     Route: 048
     Dates: start: 20051005
  9. ANTHRACYCLINE [Suspect]
     Indication: BREAST CANCER

REACTIONS (2)
  - CARDIAC FAILURE [None]
  - RENAL FAILURE ACUTE [None]
